FAERS Safety Report 5621195-8 (Version None)
Quarter: 2008Q1

REPORT INFORMATION
  Report Type: 
  Country: None (occurrence: None)
  Receive Date: 20080114
  Receipt Date: 20061125
  Transmission Date: 20080703
  Serious: Yes (Disabling, Other)
  Sender: FDA-Public Use
  Company Number: A03200607530

PATIENT
  Age: 81 Year
  Sex: Male
  Weight: 92.9874 kg

DRUGS (8)
  1. PLAVIX [Suspect]
     Indication: STENT PLACEMENT
     Dosage: ORAL
     Route: 048
     Dates: start: 20040806, end: 20061223
  2. FINASTERIDE [Concomitant]
  3. LEVOTHYROXINE SODIUM [Concomitant]
  4. ALLOPURINOL [Concomitant]
  5. GEMFIBROZIL [Concomitant]
  6. TAMSULOSIN HCL [Concomitant]
  7. ACETYSALICYLIC ACID [Concomitant]
  8. VITAMIN CAP [Concomitant]

REACTIONS (3)
  - FATIGUE [None]
  - MALAISE [None]
  - SYNCOPE [None]
